FAERS Safety Report 12706856 (Version 1)
Quarter: 2016Q3

REPORT INFORMATION
  Report Type: Spontaneous
  Country: US (occurrence: US)
  Receive Date: 20160901
  Receipt Date: 20160901
  Transmission Date: 20161109
  Serious: No
  Sender: FDA-Public Use
  Company Number: US-ASTRAZENECA-2016SE91437

PATIENT
  Age: 26589 Day
  Sex: Female
  Weight: 49.9 kg

DRUGS (1)
  1. SYMBICORT [Suspect]
     Active Substance: BUDESONIDE\FORMOTEROL FUMARATE DIHYDRATE
     Indication: CHRONIC OBSTRUCTIVE PULMONARY DISEASE
     Dosage: TWO PUFFS ONCE A DAY IN THE AFTERNOON 12 OR 1 OCLOCK
     Route: 055
     Dates: start: 20160505

REACTIONS (5)
  - Device malfunction [Unknown]
  - Off label use [Unknown]
  - Intentional product misuse [Unknown]
  - Anxiety [Unknown]
  - Stress [Unknown]

NARRATIVE: CASE EVENT DATE: 20160505
